FAERS Safety Report 4609740-2 (Version None)
Quarter: 2005Q1

REPORT INFORMATION
  Report Type: 
  Country: None (occurrence: None)
  Receive Date: 20050314
  Receipt Date: 20041001
  Transmission Date: 20050727
  Serious: Yes (Life-Threatening)
  Sender: FDA-Public Use
  Company Number: 8959

PATIENT
  Age: 71 Year
  Sex: Female

DRUGS (7)
  1. CEFUROXIME [Suspect]
     Dosage: 1.5 G ONCE, IV
     Route: 042
     Dates: start: 20040917, end: 20040917
  2. MORPHINE [Suspect]
     Indication: ANALGESIC EFFECT
     Dosage: 0.2 MG ONCE, IT
     Route: 038
     Dates: start: 20040917, end: 20040917
  3. BUPIVACAINE [Concomitant]
  4. MIDAZOLAM [Concomitant]
  5. EPHEDRINE SUL CAP [Concomitant]
  6. ATENOLOL [Concomitant]
  7. THYROXINE SODIUM [Concomitant]

REACTIONS (2)
  - OBSTRUCTIVE AIRWAYS DISORDER [None]
  - SWOLLEN TONGUE [None]
